FAERS Safety Report 5357912-4 (Version None)
Quarter: 2007Q2

REPORT INFORMATION
  Report Type: 
  Country: None (occurrence: None)
  Receive Date: 20070612
  Receipt Date: 20070529
  Transmission Date: 20071010
  Serious: Yes (Life-Threatening, Other)
  Sender: FDA-Public Use
  Company Number: VER_00064_2007

PATIENT
  Age: 80 Year
  Sex: Female

DRUGS (2)
  1. EPINEPHRINE [Suspect]
     Indication: LIP SWELLING
     Dates: start: 20061201
  2. EPINEPHRINE [Suspect]
     Indication: SWOLLEN TONGUE
     Dates: start: 20061201

REACTIONS (6)
  - DRUG ADMINISTRATION ERROR [None]
  - LIP SWELLING [None]
  - MEDICAL DEVICE COMPLICATION [None]
  - PHARMACEUTICAL PRODUCT COMPLAINT [None]
  - PROCEDURAL COMPLICATION [None]
  - SWOLLEN TONGUE [None]
